FAERS Safety Report 14526503 (Version 2)
Quarter: 2018Q1

REPORT INFORMATION
  Report Type: Spontaneous
  Country: CZ (occurrence: CZ)
  Receive Date: 20180213
  Receipt Date: 20180222
  Transmission Date: 20180509
  Serious: Yes (Other)
  Sender: FDA-Public Use
  Company Number: CZ-BAYER-2018-023997

PATIENT
  Age: 65 Year
  Sex: Male

DRUGS (1)
  1. NEXAVAR [Suspect]
     Active Substance: SORAFENIB
     Indication: HEPATOCELLULAR CARCINOMA
     Dosage: 400 MG
     Route: 048
     Dates: start: 201610, end: 201612

REACTIONS (8)
  - Drug tolerance decreased [None]
  - Decreased appetite [None]
  - Flatulence [None]
  - Rash [None]
  - Hepatocellular carcinoma [None]
  - Blood pressure fluctuation [None]
  - Alpha 1 foetoprotein increased [None]
  - Chest pain [None]
